FAERS Safety Report 6312024-8 (Version None)
Quarter: 2009Q3

REPORT INFORMATION
  Report Type: 
  Country: None (occurrence: None)
  Receive Date: 20090813
  Receipt Date: 20090813
  Transmission Date: 20100115
  Serious: Yes (Disabling)
  Sender: FDA-Public Use
  Company Number: None

PATIENT
  Age: 44 Year
  Sex: Female
  Weight: 72.5755 kg

DRUGS (1)
  1. ZICAM NASAL SPRAY [Suspect]
     Indication: NASAL CONGESTION
     Dosage: 2 SPRAYS EACH NOSTRIL 2-3X/DAY 1-2 WEEKS ?

REACTIONS (2)
  - ANOSMIA [None]
  - DYSGEUSIA [None]
